FAERS Safety Report 22231502 (Version 1)
Quarter: 2023Q2

REPORT INFORMATION
  Report Type: Other
  Country: US (occurrence: None)
  Receive Date: 20230420
  Receipt Date: 20230420
  Transmission Date: 20230722
  Serious: No
  Sender: FDA-Public Use
  Company Number: US-ROCHE-3330799

PATIENT
  Age: 27 Year
  Sex: Female
  Weight: 72.640 kg

DRUGS (10)
  1. OCREVUS [Suspect]
     Active Substance: OCRELIZUMAB
     Indication: Relapsing-remitting multiple sclerosis
     Dosage: INFUSE 300 MG ON DAY 1 AND DAY 15 AND THAN INFUSE 600 MG EVERY 6 MONTHS
     Route: 042
     Dates: start: 2019
  2. TIZANIDINE [Concomitant]
     Active Substance: TIZANIDINE
  3. CLONAZEPAM [Concomitant]
     Active Substance: CLONAZEPAM
  4. ALBUTEROL [Concomitant]
     Active Substance: ALBUTEROL
  5. ASPIRIN [Concomitant]
     Active Substance: ASPIRIN
  6. KEFLEX [Concomitant]
     Active Substance: CEPHALEXIN
  7. CETIRIZINE HYDROCHLORIDE [Concomitant]
     Active Substance: CETIRIZINE HYDROCHLORIDE
  8. ERGOCALCIFEROL [Concomitant]
     Active Substance: ERGOCALCIFEROL
  9. PREDNISOLONE [Concomitant]
     Active Substance: PREDNISOLONE
  10. IMITREX [Concomitant]
     Active Substance: SUMATRIPTAN SUCCINATE

REACTIONS (3)
  - Oropharyngeal pain [Recovered/Resolved]
  - Drug ineffective [Unknown]
  - Influenza [Recovered/Resolved]

NARRATIVE: CASE EVENT DATE: 20190101
